FAERS Safety Report 17861050 (Version 1)
Quarter: 2020Q2

REPORT INFORMATION
  Report Type: Spontaneous
  Country: TW (occurrence: TW)
  Receive Date: 20200604
  Receipt Date: 20200604
  Transmission Date: 20200714
  Serious: Yes (Hospitalization, Other)
  Sender: FDA-Public Use
  Company Number: TW-SA-2020SA140809

PATIENT

DRUGS (5)
  1. MULTAQ [Suspect]
     Active Substance: DRONEDARONE
     Dosage: 1 UNK, QD
  2. EAZIDE [Suspect]
     Active Substance: TRICHLORMETHIAZIDE
     Dosage: 1 UNK, QD
  3. ALLOPURINOL. [Suspect]
     Active Substance: ALLOPURINOL
     Dosage: 1 UNK, QD
     Dates: start: 20171102, end: 20171114
  4. RIVAROXABAN [Suspect]
     Active Substance: RIVAROXABAN
     Dosage: (15 MG TABLET) 1 UNK, QD
  5. COLCHICINE. [Suspect]
     Active Substance: COLCHICINE
     Dosage: UNK
     Dates: start: 201710

REACTIONS (10)
  - Stevens-Johnson syndrome [Unknown]
  - Rash [Recovering/Resolving]
  - Rash maculo-papular [Unknown]
  - Gout [Recovered/Resolved]
  - Oral mucosa erosion [Unknown]
  - Corneal erosion [Unknown]
  - HLA-B*5801 assay positive [Unknown]
  - Genital erosion [Unknown]
  - Mouth ulceration [Unknown]
  - Condition aggravated [Unknown]

NARRATIVE: CASE EVENT DATE: 201710
